FAERS Safety Report 9536608 (Version 2)
Quarter: 2013Q3

REPORT INFORMATION
  Report Type: Spontaneous
  Country: CN (occurrence: CN)
  Receive Date: 20130919
  Receipt Date: 20130919
  Transmission Date: 20140515
  Serious: Yes (Hospitalization)
  Sender: FDA-Public Use
  Company Number: CN-RANBAXY-2013R1-71737

PATIENT
  Age: 63 Year
  Sex: Female

DRUGS (1)
  1. CIPROFLOXACIN [Suspect]
     Indication: INFLUENZA
     Dosage: 200 MG, BID
     Route: 042

REACTIONS (2)
  - Myasthenia gravis [Recovering/Resolving]
  - Respiratory failure [Recovering/Resolving]
